FAERS Safety Report 17235640 (Version 1)
Quarter: 2020Q1

REPORT INFORMATION
  Report Type: Report from Study
  Country: ES (occurrence: ES)
  Receive Date: 20200106
  Receipt Date: 20200106
  Transmission Date: 20200409
  Serious: Yes (Life-Threatening, Hospitalization)
  Sender: FDA-Public Use
  Company Number: ES-TEVA-2019-ES-1161692

PATIENT
  Age: 81 Year
  Sex: Female

DRUGS (6)
  1. SIMVASTATINA (1023A) [Concomitant]
     Active Substance: SIMVASTATIN
     Indication: DYSLIPIDAEMIA
     Dosage: 40 MILLIGRAM
     Route: 048
     Dates: start: 20170321, end: 20180312
  2. TARDYFERON 80 MG COMPRIMIDOS RECUBIERTOS, 30 COMPRIMIDOS [Concomitant]
     Indication: ANAEMIA
     Dosage: 80 MILLIGRAM
     Route: 048
     Dates: start: 20180227, end: 20180312
  3. LORAZEPAM (1864A) [Concomitant]
     Active Substance: LORAZEPAM
     Dosage: 1 MILLIGRAM
     Route: 048
     Dates: start: 20150328, end: 20180312
  4. FOLICO ACIDO (149A) [Concomitant]
     Dosage: 2.5 MILLIGRAM
     Route: 048
     Dates: start: 20180227, end: 20180312
  5. LISINOPRIL (2222A) [Suspect]
     Active Substance: LISINOPRIL
     Indication: HYPERTENSION
     Dosage: 20 MILLIGRAM
     Route: 048
     Dates: start: 20041202, end: 20180312
  6. PARACETAMOL (12A) [Concomitant]
     Active Substance: ACETAMINOPHEN
     Dosage: 2 GRAM
     Route: 048
     Dates: start: 20150401, end: 20180312

REACTIONS (2)
  - Acute kidney injury [Recovered/Resolved]
  - Hyperkalaemia [Recovered/Resolved]

NARRATIVE: CASE EVENT DATE: 20180312
